FAERS Safety Report 9717492 (Version 1)
Quarter: 2013Q4

REPORT INFORMATION
  Report Type: Spontaneous
  Country: US (occurrence: US)
  Receive Date: 20131127
  Receipt Date: 20131127
  Transmission Date: 20140711
  Serious: Yes (Other)
  Sender: FDA-Public Use
  Company Number: US-GILEAD-2009-0019808

PATIENT
  Age: 66 Year
  Sex: Female

DRUGS (10)
  1. LETAIRIS [Suspect]
     Indication: PULMONARY ARTERIAL HYPERTENSION
     Route: 048
     Dates: start: 20080926
  2. WARFARIN [Concomitant]
  3. PULMICORT [Concomitant]
  4. SPIRIVA [Concomitant]
  5. ALBUTEROL NEBS [Concomitant]
  6. ALLEGRA [Concomitant]
  7. LASIX [Concomitant]
  8. EVISTA [Concomitant]
  9. LORAZEPAM [Concomitant]
  10. KLOR-CON [Concomitant]

REACTIONS (1)
  - Oedema peripheral [Not Recovered/Not Resolved]
